FAERS Safety Report 24283995 (Version 1)
Quarter: 2024Q3

REPORT INFORMATION
  Report Type: Spontaneous
  Country: US (occurrence: US)
  Receive Date: 20240905
  Receipt Date: 20240905
  Transmission Date: 20241017
  Serious: No
  Sender: SANOFI AVENTIS
  Company Number: US-SANOFI-02192062

PATIENT
  Age: 20 Year
  Sex: Female

DRUGS (1)
  1. DUPIXENT [Suspect]
     Active Substance: DUPILUMAB
     Indication: Nasal polyps
     Dosage: 300 MG, QOW
     Route: 065
     Dates: start: 202403

REACTIONS (4)
  - Contusion [Recovered/Resolved]
  - Rhinalgia [Recovered/Resolved]
  - Myalgia [Unknown]
  - Nasal polyps [Recovering/Resolving]

NARRATIVE: CASE EVENT DATE: 20240101
